FAERS Safety Report 6552741-8 (Version None)
Quarter: 2010Q1

REPORT INFORMATION
  Report Type: 
  Country: None (occurrence: None)
  Receive Date: 20100121
  Receipt Date: 20100106
  Transmission Date: 20100710
  Serious: Yes (Death, Hospitalization)
  Sender: FDA-Public Use
  Company Number: KV200900598

PATIENT
  Age: 74 Year
  Sex: Female
  Weight: 65.3 kg

DRUGS (23)
  1. ISOSORBIDE MONONITRATE [Suspect]
     Indication: HYPERTENSION
     Dosage: 30 MG, QD, ORAL
     Route: 048
     Dates: start: 20070222, end: 20080830
  2. CLARINEX /01202601/ (LORATADINE, PSEUDOEPHEDRINE SULFATE) [Concomitant]
  3. TESSALON [Concomitant]
  4. AVANDAMET [Concomitant]
  5. ASPIRIN [Concomitant]
  6. SOTALOL HCL [Concomitant]
  7. LEVOTHYROXINE SODIUM [Concomitant]
  8. EVISTA /01303201/ (RALOXIFENE) [Concomitant]
  9. METFORMIN HCL [Concomitant]
  10. LANTUS [Concomitant]
  11. VITAMIN B12 /00056201/ (CYANOCOBALAMIN) [Concomitant]
  12. LASIX [Concomitant]
  13. LISINOPRIL [Concomitant]
  14. GLUCOTROL XL [Concomitant]
  15. AMARYL [Concomitant]
  16. NOVOLIN /00030501/ (INSULIN) [Concomitant]
  17. FUROSEMIDE [Concomitant]
  18. SIMVASTATIN [Concomitant]
  19. ERGOCALCIFEROL [Concomitant]
  20. LEVOTHYROXINE SODIUM [Concomitant]
  21. PLAVIX [Concomitant]
  22. BETAPACE [Concomitant]
  23. SYNTHROID [Concomitant]

REACTIONS (34)
  - ANIMAL SCRATCH [None]
  - ASTHENIA [None]
  - CARDIO-RESPIRATORY ARREST [None]
  - CELLULITIS [None]
  - COUGH [None]
  - DIABETES MELLITUS INADEQUATE CONTROL [None]
  - DIARRHOEA [None]
  - DYSPNOEA [None]
  - ECONOMIC PROBLEM [None]
  - FEELING HOT [None]
  - HEART RATE DECREASED [None]
  - HYPERGLYCAEMIA [None]
  - HYPERHIDROSIS [None]
  - HYPOGLYCAEMIA [None]
  - HYPOTENSION [None]
  - INCOHERENT [None]
  - INSOMNIA [None]
  - IRRITABLE BOWEL SYNDROME [None]
  - MENTAL STATUS CHANGES [None]
  - MYOCARDIAL INFARCTION [None]
  - NASOPHARYNGITIS [None]
  - OEDEMA PERIPHERAL [None]
  - PAIN IN EXTREMITY [None]
  - PALLOR [None]
  - PRESYNCOPE [None]
  - PULMONARY HYPERTENSION [None]
  - PYREXIA [None]
  - RASH PRURITIC [None]
  - RENAL FAILURE CHRONIC [None]
  - SKIN INFECTION [None]
  - TREMOR [None]
  - UNRESPONSIVE TO STIMULI [None]
  - UPPER RESPIRATORY TRACT INFECTION [None]
  - WEIGHT DECREASED [None]
